FAERS Safety Report 22521168 (Version 1)
Quarter: 2023Q2

REPORT INFORMATION
  Report Type: Spontaneous
  Country: US (occurrence: US)
  Receive Date: 20230605
  Receipt Date: 20230605
  Transmission Date: 20230722
  Serious: No
  Sender: FDA-Public Use
  Company Number: US-ETHYPHARM-2023001216

PATIENT
  Age: 32 Year
  Sex: Female

DRUGS (1)
  1. BUPRENORPHINE [Suspect]
     Active Substance: BUPRENORPHINE
     Indication: Drug use disorder
     Dosage: THREE TIMES A DAY
     Route: 065

REACTIONS (3)
  - Dyspnoea [Unknown]
  - Chest pain [Unknown]
  - Product use in unapproved indication [Unknown]
